FAERS Safety Report 13940514 (Version 2)
Quarter: 2017Q4

REPORT INFORMATION
  Report Type: Spontaneous
  Country: US (occurrence: US)
  Receive Date: 20170906
  Receipt Date: 20171106
  Transmission Date: 20180320
  Serious: No
  Sender: FDA-Public Use
  Company Number: US-PFIZER INC-2017383328

PATIENT
  Age: 82 Year
  Sex: Male
  Weight: 70 kg

DRUGS (35)
  1. CIPROFLOXACIN HCL [Concomitant]
     Active Substance: CIPROFLOXACIN HYDROCHLORIDE
     Dosage: 500 MG, 2X/DAY
     Route: 048
  2. LORAZEPAM. [Concomitant]
     Active Substance: LORAZEPAM
     Dosage: 0.5 MG, 3X/DAY
     Route: 048
  3. AMLODIPINE BESYLATE. [Concomitant]
     Active Substance: AMLODIPINE BESYLATE
     Dosage: 10 MG, 1X/DAY (EVERY MORNING)
     Route: 048
  4. LACTULOSE. [Concomitant]
     Active Substance: LACTULOSE
     Dosage: 15 ML, 1X/DAY (3 DAYS)
     Route: 048
  5. WARFARIN SODIUM. [Concomitant]
     Active Substance: WARFARIN SODIUM
     Dosage: 3 MG, 1X/DAY
     Route: 048
  6. FLUZONE [Concomitant]
     Active Substance: INFLUENZA A VIRUS A/CALIFORNIA/7/2009 X-179A (H1N1) ANTIGEN (FORMALDEHYDE INACTIVATED)\INFLUENZA A VIRUS A/VICTORIA/210/2009 X-187 (H3N2) ANTIGEN (FORMALDEHYDE INACTIVATED)\INFLUENZA B VIRUS B/BRISBANE/60/2008 ANTIGEN (FORMALDEHYDE INACTIVATED)
     Dosage: UNK
     Route: 030
  7. LISINOPRIL. [Concomitant]
     Active Substance: LISINOPRIL
     Dosage: 20 MG, 1X/DAY
     Route: 048
  8. DOXYCYCLINE HYCLATE. [Concomitant]
     Active Substance: DOXYCYCLINE HYCLATE
     Dosage: 100 MG, 2X/DAY
  9. WARFARIN SODIUM. [Concomitant]
     Active Substance: WARFARIN SODIUM
     Dosage: 2.5 MG, 1X/DAY
     Route: 048
  10. WARFARIN SODIUM. [Concomitant]
     Active Substance: WARFARIN SODIUM
     Dosage: 4 MG, 1X/DAY
     Route: 048
  11. CEPHALEXIN. [Concomitant]
     Active Substance: CEPHALEXIN
     Dosage: 500 MG, 2X/DAY
     Route: 048
  12. PREVACID [Concomitant]
     Active Substance: LANSOPRAZOLE
     Dosage: 15 MG, 1X/DAY (ON TONGUE)
     Route: 048
  13. HYDRALAZINE [Concomitant]
     Active Substance: HYDRALAZINE HYDROCHLORIDE
     Dosage: 25 MG, 2X/DAY
     Route: 048
  14. LISINOPRIL. [Concomitant]
     Active Substance: LISINOPRIL
     Dosage: 10 MG, 1X/DAY (EVERY MORNING)
     Route: 048
  15. CEPHALEXIN. [Concomitant]
     Active Substance: CEPHALEXIN
     Dosage: 500 MG, 3X/DAY (4 DAYS)
     Route: 048
  16. TIKOSYN [Concomitant]
     Active Substance: DOFETILIDE
     Dosage: 250 UG, 2X/DAY (EVERY 12 HOURS)
  17. METOPROLOL TARTRATE. [Suspect]
     Active Substance: METOPROLOL TARTRATE
     Dosage: 25 MG, 2X/DAY (EVERY 12 HOURS)
     Route: 048
  18. LORATADINE. [Concomitant]
     Active Substance: LORATADINE
     Dosage: 10 MG, 1X/DAY (EVERY MORNING)
  19. LISINOPRIL. [Concomitant]
     Active Substance: LISINOPRIL
     Dosage: 5 MG, 1X/DAY (EVERY MORNING)
     Route: 048
  20. WARFARIN SODIUM. [Concomitant]
     Active Substance: WARFARIN SODIUM
     Dosage: UNK UNK, DAILY (1/2-1 TABLET DAILY AS DIRECTED)
     Route: 048
  21. DEXAMETHASONE. [Concomitant]
     Active Substance: DEXAMETHASONE
     Dosage: 4 MG, 1X/DAY
     Route: 048
  22. LEVOTHYROXINE. [Concomitant]
     Active Substance: LEVOTHYROXINE
     Dosage: 50 UG, 1X/DAY
     Route: 048
  23. AMLODIPINE BESYLATE. [Concomitant]
     Active Substance: AMLODIPINE BESYLATE
     Dosage: 5 MG, 1X/DAY (EVERY MORNING)
     Route: 048
  24. AMOXICILLIN. [Concomitant]
     Active Substance: AMOXICILLIN
     Dosage: 500 MG, 3X/DAY (EVERY 8 HOURS FOR 10 DAYS)
     Route: 048
  25. AMOXICILLIN. [Concomitant]
     Active Substance: AMOXICILLIN
     Dosage: 500 MG, 3X/DAY (EVERY 8 HOURS UNTIL FINISHED)
     Route: 048
  26. WARFARIN SODIUM. [Concomitant]
     Active Substance: WARFARIN SODIUM
     Dosage: 1 MG, 1X/DAY
     Route: 048
  27. METOPROLOL TARTRATE. [Suspect]
     Active Substance: METOPROLOL TARTRATE
     Indication: HEART RATE IRREGULAR
     Dosage: 25 MG, DAILY
     Dates: start: 201010
  28. METOPROLOL TARTRATE. [Suspect]
     Active Substance: METOPROLOL TARTRATE
     Dosage: 12.5 MG, 2X/DAY (1/2 TABLET)
     Route: 048
  29. AZITHROMYCIN ANHYDROUS. [Concomitant]
     Active Substance: AZITHROMYCIN ANHYDROUS
     Dosage: UNK  (TAKE 2 TABLETS BY MOUTH TODAY THEN TAKE 1 TABLET DAILY FOR 4 DAYS)
     Route: 048
  30. HYDROCOD BIT HOMAT [Concomitant]
     Indication: COUGH
     Dosage: UNK UNK, AS NEEDED (1 TEASPOONFUL BY MOUTH EVERY 8 HOURS)
     Route: 048
  31. INTEGRA F [Concomitant]
     Active Substance: ASCORBIC ACID\FERROUS ASPARTO GLYCINATE\FERROUS FUMARATE\FOLIC ACID\NIACIN
     Dosage: 1 DF, 1X/DAY
  32. MEGESTROL ACETATE. [Concomitant]
     Active Substance: MEGESTROL ACETATE
     Dosage: 20 ML, DAILY (4 TEASPOON)
  33. FUROSEMIDE. [Concomitant]
     Active Substance: FUROSEMIDE
     Dosage: 10 MG, ALTERNATE DAY (TAKE 1/2 TABLET BY MOUTH EVERY OTHER DAY FOR 8 DAYS)
     Route: 048
  34. HYDROMET SYRUP [Concomitant]
     Indication: COUGH
     Dosage: UNK, AS NEEDED (TAKE 1 TEASPOONFUL BY MOUTH EVERY 4 HOURS)
     Route: 048
  35. TRIAMCINOLONE [Concomitant]
     Active Substance: TRIAMCINOLONE
     Indication: RASH
     Dosage: UNK UNK, AS NEEDED (APPLY TO RASH 2-3 TIMES A DAY)

REACTIONS (1)
  - Drug ineffective [Unknown]

NARRATIVE: CASE EVENT DATE: 2011
